FAERS Safety Report 7371478-9 (Version None)
Quarter: 2011Q1

REPORT INFORMATION
  Report Type: 
  Country: None (occurrence: None)
  Receive Date: 20110322
  Receipt Date: 20110322
  Transmission Date: 20110831
  Serious: Yes (Life-Threatening, Disabling)
  Sender: FDA-Public Use
  Company Number: None

PATIENT
  Age: 47 Year
  Sex: Male
  Weight: 108.8633 kg

DRUGS (4)
  1. TRIAMTERENE AND HYDROCHLOROTHIAZIDE [Suspect]
     Indication: VISION BLURRED
     Dosage: 1 1XDAILY PO
     Route: 048
     Dates: start: 20100721, end: 20100923
  2. TRIAMTERENE AND HYDROCHLOROTHIAZIDE [Suspect]
     Indication: DEHYDRATION
     Dosage: 1 1XDAILY PO
     Route: 048
     Dates: start: 20100721, end: 20100923
  3. TRIAMTERENE AND HYDROCHLOROTHIAZIDE [Suspect]
     Indication: DIABETES MELLITUS
     Dosage: 1 1XDAILY PO
     Route: 048
     Dates: start: 20100721, end: 20100923
  4. TRIAMTERENE AND HYDROCHLOROTHIAZIDE [Suspect]
     Indication: DEHYDRATION
     Dosage: 1 1XDAILY PO
     Route: 048
     Dates: start: 20100414, end: 20100721

REACTIONS (3)
  - NO THERAPEUTIC RESPONSE [None]
  - VISUAL ACUITY REDUCED [None]
  - DIABETES MELLITUS [None]
